FAERS Safety Report 6481214-6 (Version None)
Quarter: 2009Q4

REPORT INFORMATION
  Report Type: 
  Country: None (occurrence: None)
  Receive Date: 20091203
  Receipt Date: 20091119
  Transmission Date: 20100525
  Serious: Yes (Death, Hospitalization)
  Sender: FDA-Public Use
  Company Number: POMP-1000786

PATIENT
  Age: 10 Month
  Sex: Female

DRUGS (1)
  1. MYOZYME [Suspect]
     Indication: GLYCOGEN STORAGE DISEASE TYPE II
     Dosage: INTRAVENOUS
     Route: 042
     Dates: start: 20090801

REACTIONS (4)
  - DISEASE PROGRESSION [None]
  - GLYCOGEN STORAGE DISEASE TYPE II [None]
  - PNEUMONIA [None]
  - RESPIRATORY FAILURE [None]
